FAERS Safety Report 4315801-8 (Version None)
Quarter: 2004Q1

REPORT INFORMATION
  Report Type: 
  Country: None (occurrence: None)
  Receive Date: 20040310
  Receipt Date: 20040227
  Transmission Date: 20041129
  Serious: Yes (Life-Threatening, Hospitalization, Disabling)
  Sender: FDA-Public Use
  Company Number: 2003PK00196

PATIENT
  Age: 80 Year
  Sex: Female
  Weight: 62.4 kg

DRUGS (4)
  1. ZD1839 [Suspect]
     Indication: OVARIAN CANCER
     Dosage: 500 MG DAILY PO
     Route: 048
     Dates: start: 20030115, end: 20030205
  2. TAMOXIFEN CITRATE [Suspect]
     Indication: OVARIAN CANCER
     Dosage: 40 MG DAILY PO
     Route: 048
     Dates: start: 20030115, end: 20030205
  3. ALDACTONE [Concomitant]
  4. UNAT [Concomitant]

REACTIONS (5)
  - DIARRHOEA [None]
  - FATIGUE [None]
  - SKIN REACTION [None]
  - STOMATITIS [None]
  - WEIGHT DECREASED [None]
